FAERS Safety Report 5153251-5 (Version None)
Quarter: 2006Q4

REPORT INFORMATION
  Report Type: 
  Country: None (occurrence: None)
  Receive Date: 20061114
  Receipt Date: 20061114
  Transmission Date: 20070319
  Serious: No
  Sender: FDA-Public Use
  Company Number: None

PATIENT
  Age: 32 Year
  Sex: Female

DRUGS (1)
  1. PHENERGAN [Suspect]
     Dosage: INJECTABLE

REACTIONS (10)
  - ERYTHEMA [None]
  - FINGER AMPUTATION [None]
  - GANGRENE [None]
  - IATROGENIC INJURY [None]
  - INFUSION SITE PAIN [None]
  - LOCAL SWELLING [None]
  - MEDICATION ERROR [None]
  - PERIPHERAL COLDNESS [None]
  - RASH MACULAR [None]
  - SKIN DISCOLOURATION [None]
